FAERS Safety Report 13530352 (Version 1)
Quarter: 2017Q2

REPORT INFORMATION
  Report Type: Spontaneous
  Country: FR (occurrence: FR)
  Receive Date: 20170509
  Receipt Date: 20170509
  Transmission Date: 20170830
  Serious: Yes (Hospitalization)
  Sender: FDA-Public Use
  Company Number: FR-ASTRAZENECA-2017SE48142

PATIENT
  Age: 22132 Day
  Sex: Female

DRUGS (26)
  1. CERTICAN [Suspect]
     Active Substance: EVEROLIMUS
     Indication: PROPHYLAXIS AGAINST TRANSPLANT REJECTION
     Dosage: 1.25 MG, 2 DF, DAILY
     Route: 048
     Dates: start: 20170222, end: 20170316
  2. CORTANCYL [Concomitant]
     Active Substance: PREDNISONE
     Indication: IMMUNOSUPPRESSION
     Dates: start: 20170121
  3. SIMULECT [Concomitant]
     Active Substance: BASILIXIMAB
     Indication: IMMUNOSUPPRESSION
     Dates: start: 20170121, end: 20170124
  4. LASILIX [Suspect]
     Active Substance: FUROSEMIDE
     Indication: RENAL TRANSPLANT
     Route: 048
     Dates: start: 20170124
  5. THYMOGLOBULINE [Concomitant]
     Active Substance: LAPINE T-LYMPHOCYTE IMMUNE GLOBULIN
     Indication: IMMUNOSUPPRESSION
     Dates: start: 20170209, end: 20170217
  6. DIFFU-K [Concomitant]
     Active Substance: POTASSIUM CHLORIDE
     Dates: start: 20170126
  7. MYFORTIC [Suspect]
     Active Substance: MYCOPHENOLATE SODIUM
     Indication: PROPHYLAXIS AGAINST TRANSPLANT REJECTION
     Route: 048
     Dates: start: 20170209, end: 20170220
  8. PARACETAMOL [Concomitant]
     Active Substance: ACETAMINOPHEN
  9. CERTICAN [Suspect]
     Active Substance: EVEROLIMUS
     Indication: PROPHYLAXIS AGAINST TRANSPLANT REJECTION
     Route: 048
     Dates: start: 20170214, end: 20170222
  10. BACTRIM [Suspect]
     Active Substance: SULFAMETHOXAZOLE\TRIMETHOPRIM
     Indication: PROPHYLAXIS
     Route: 048
     Dates: start: 20170124, end: 20170327
  11. ROVALCYTE [Suspect]
     Active Substance: VALGANCICLOVIR HYDROCHLORIDE
     Indication: PROPHYLAXIS
     Route: 048
     Dates: start: 20170124, end: 20170327
  12. MYFORTIC [Suspect]
     Active Substance: MYCOPHENOLATE SODIUM
     Indication: PROPHYLAXIS AGAINST TRANSPLANT REJECTION
     Route: 048
     Dates: start: 20170220, end: 20170322
  13. TAHOR [Suspect]
     Active Substance: ATORVASTATIN CALCIUM
     Indication: CARDIOVASCULAR EVENT PROPHYLAXIS
     Route: 048
     Dates: start: 20170124
  14. MYFORTIC [Suspect]
     Active Substance: MYCOPHENOLATE SODIUM
     Indication: PROPHYLAXIS AGAINST TRANSPLANT REJECTION
     Dosage: 1080 MG, 2 DF, DAILY
     Route: 048
     Dates: start: 20170121, end: 20170209
  15. PHOSPHONEUROS [Concomitant]
     Active Substance: CALCIUM PHOSPHATE, DIBASIC, ANHYDROUS\MAGNESIUM GLYCEROPHOSPHATE\PHOSPHORIC ACID\SODIUM PHOSPHATE, DIBASIC
     Dosage: 50 DROPS TWICE DAILY
     Dates: start: 20170215
  16. CORTANCYL [Concomitant]
     Active Substance: PREDNISONE
     Indication: IMMUNOSUPPRESSION
     Dates: start: 20170127
  17. OROCAL [Concomitant]
     Active Substance: CALCIUM CARBONATE
     Dates: start: 20170217
  18. EPREX [Concomitant]
     Active Substance: ERYTHROPOIETIN
     Dosage: 6000 UI, 3 DF WEEKLY
     Dates: start: 20170131
  19. INEXIUM [Suspect]
     Active Substance: ESOMEPRAZOLE
     Indication: PROPHYLAXIS AGAINST GASTROINTESTINAL ULCER
     Route: 048
     Dates: start: 20170121, end: 20170322
  20. NEORAL [Concomitant]
     Active Substance: CYCLOSPORINE
     Indication: IMMUNOSUPPRESSION
     Dates: start: 20170121, end: 20170209
  21. SODIUM BICARBONATE. [Concomitant]
     Active Substance: SODIUM BICARBONATE
     Dates: start: 20170209
  22. MYFORTIC [Suspect]
     Active Substance: MYCOPHENOLATE SODIUM
     Indication: PROPHYLAXIS AGAINST TRANSPLANT REJECTION
     Route: 048
     Dates: start: 20170322, end: 20170328
  23. CORTANCYL [Concomitant]
     Active Substance: PREDNISONE
     Indication: IMMUNOSUPPRESSION
     Dates: start: 20170206
  24. NEORAL [Concomitant]
     Active Substance: CYCLOSPORINE
     Indication: IMMUNOSUPPRESSION
     Dates: start: 20170316
  25. MAG-2 [Concomitant]
     Dates: start: 20170126
  26. ARANESP [Concomitant]
     Active Substance: DARBEPOETIN ALFA

REACTIONS (1)
  - Renal lymphocele [Recovered/Resolved with Sequelae]

NARRATIVE: CASE EVENT DATE: 20170224
